FAERS Safety Report 9053768 (Version 1)
Quarter: 2013Q1

REPORT INFORMATION
  Report Type: Spontaneous
  Country: US (occurrence: US)
  Receive Date: 20130207
  Receipt Date: 20130207
  Transmission Date: 20140127
  Serious: Yes (Other)
  Sender: FDA-Public Use
  Company Number: US-PFIZER INC-2013049186

PATIENT
  Age: 40 Year
  Sex: Female

DRUGS (2)
  1. NEURONTIN [Suspect]
     Dosage: 300 MG, 1X/DAY (AT BED TIME)
     Route: 048
  2. LAMICTAL [Concomitant]
     Dosage: 200 MG, 1X/DAY (AT BED TIME)
     Route: 048

REACTIONS (2)
  - Convulsion [Unknown]
  - Loss of employment [Unknown]
